FAERS Safety Report 14793978 (Version 1)
Quarter: 2018Q2

REPORT INFORMATION
  Report Type: Spontaneous
  Country: GR (occurrence: GR)
  Receive Date: 20180423
  Receipt Date: 20180423
  Transmission Date: 20180711
  Serious: Yes (Other)
  Sender: FDA-Public Use
  Company Number: GR-MYLANLABS-2018M1025466

PATIENT
  Age: 59 Year

DRUGS (1)
  1. RAMIPRIL. [Suspect]
     Active Substance: RAMIPRIL
     Indication: HYPERTENSION
     Dosage: UNK
     Route: 065

REACTIONS (5)
  - Skin lesion [Recovering/Resolving]
  - Rash [Unknown]
  - Pruritus [Unknown]
  - Pseudolymphoma [Recovering/Resolving]
  - Skin papilloma [Unknown]
